FAERS Safety Report 9405371 (Version 1)
Quarter: 2013Q3

REPORT INFORMATION
  Report Type: Spontaneous
  Country: GB (occurrence: None)
  Receive Date: 20130715
  Receipt Date: 20130715
  Transmission Date: 20140515
  Serious: Yes (Life-Threatening)
  Sender: FDA-Public Use
  Company Number: GER/UKI/13/0030478

PATIENT
  Age: 90 Year
  Sex: Female
  Weight: 54 kg

DRUGS (13)
  1. CIPROFLOXACIN [Suspect]
     Indication: PRODUCT USED FOR UNKNOWN INDICATION
     Dates: start: 20130625
  2. BENDROFLUMETHIAZIDE (BENDROFLUMETHIAZIDE) [Concomitant]
  3. BISOPROLOL (BISOPROLOL) [Concomitant]
  4. DOSULEPIN (DOSULEPIN) [Concomitant]
  5. DOXAZOSIN (DOXAZOSIN) [Concomitant]
  6. HYDROCORTISONE (HYDROCORTISONE) [Concomitant]
  7. INDAPAMIDE (INDAPAMIDE) [Concomitant]
  8. IRBESARTAN (IRESARTAN) [Concomitant]
  9. MEBEVERIN HYDROCHLORIDE (MEBEVERINE HYDROCHLORIDE) [Concomitant]
  10. NATRILIX (INDAPAMIDE) [Concomitant]
  11. NITROFURANTOIN [Concomitant]
  12. PARACETAMOL (PARACETAMOL) [Concomitant]
  13. RANITIDINE (RANITIDINE) [Concomitant]

REACTIONS (2)
  - Hypotension [None]
  - Syncope [None]
